FAERS Safety Report 9049074 (Version 1)
Quarter: 2013Q1

REPORT INFORMATION
  Report Type: Spontaneous
  Country: US (occurrence: None)
  Receive Date: 20130129
  Receipt Date: 20130129
  Transmission Date: 20140127
  Serious: Yes (Other)
  Sender: FDA-Public Use
  Company Number: None

PATIENT
  Age: 31 Year
  Sex: Female
  Weight: 64.86 kg

DRUGS (1)
  1. ADDERALL [Suspect]
     Indication: ATTENTION DEFICIT/HYPERACTIVITY DISORDER
     Route: 048
     Dates: start: 20110908, end: 20111008

REACTIONS (5)
  - Constipation [None]
  - Abdominal pain [None]
  - Therapeutic response unexpected with drug substitution [None]
  - Drug level changed [None]
  - Drug effect decreased [None]
